FAERS Safety Report 5935189-6 (Version None)
Quarter: 2008Q4

REPORT INFORMATION
  Report Type: 
  Country: None (occurrence: None)
  Receive Date: 20081028
  Receipt Date: 20081014
  Transmission Date: 20090506
  Serious: Yes (Hospitalization)
  Sender: FDA-Public Use
  Company Number: 08-001646

PATIENT
  Age: 19 Year
  Sex: Female
  Weight: 56.7 kg

DRUGS (2)
  1. FEMCON FE [Suspect]
     Indication: CONTRACEPTION
     Dosage: 0.4MG/35MCG, QD, ORAL
     Route: 048
     Dates: start: 20080921
  2. BACTRIM [Concomitant]

REACTIONS (2)
  - METRORRHAGIA [None]
  - URINARY TRACT INFECTION [None]
